FAERS Safety Report 23143640 (Version 3)
Quarter: 2024Q1

REPORT INFORMATION
  Report Type: Report from Study
  Country: US (occurrence: US)
  Receive Date: 20231103
  Receipt Date: 20240129
  Transmission Date: 20240409
  Serious: Yes (Other)
  Sender: FDA-Public Use
  Company Number: US-TAKEDA-2023TUS105375

PATIENT
  Sex: Female

DRUGS (1)
  1. VEDOLIZUMAB [Suspect]
     Active Substance: VEDOLIZUMAB
     Indication: Product used for unknown indication
     Dosage: 300 MILLIGRAM
     Route: 042

REACTIONS (23)
  - Gastrointestinal obstruction [Unknown]
  - Graves^ disease [Unknown]
  - Photosensitivity reaction [Unknown]
  - Eye disorder [Unknown]
  - Influenza like illness [Unknown]
  - Condition aggravated [Unknown]
  - Alopecia [Unknown]
  - Anxiety [Unknown]
  - Poor quality sleep [Unknown]
  - Burning sensation [Unknown]
  - Memory impairment [Unknown]
  - Gastrointestinal disorder [Unknown]
  - Dry mouth [Unknown]
  - Dry eye [Unknown]
  - Pain of skin [Unknown]
  - Depressed mood [Unknown]
  - Skin burning sensation [Unknown]
  - Pain [Unknown]
  - Secretion discharge [Unknown]
  - Erythema [Unknown]
  - Arthralgia [Unknown]
  - Oropharyngeal pain [Unknown]
  - Pain in extremity [Unknown]
